FAERS Safety Report 5257200-0 (Version None)
Quarter: 2007Q1

REPORT INFORMATION
  Report Type: 
  Country: None (occurrence: None)
  Receive Date: 20070307
  Receipt Date: 20070227
  Transmission Date: 20070707
  Serious: Yes (Other)
  Sender: FDA-Public Use
  Company Number: US-GLAXOSMITHKLINE-B0457175A

PATIENT
  Age: 39 Year
  Sex: Female

DRUGS (9)
  1. BUPROPION HCL [Suspect]
     Indication: MAJOR DEPRESSION
     Route: 048
  2. BUSPIRONE HCL [Concomitant]
     Route: 065
  3. FELODIPINE [Concomitant]
     Route: 065
  4. FLUOXETINE [Concomitant]
     Route: 065
  5. HYDROCHLOROTHIAZIDE [Concomitant]
     Route: 065
  6. OMEPRAZOLE [Concomitant]
     Route: 065
  7. SIMVASTATIN [Concomitant]
     Route: 065
  8. SULINDAC [Concomitant]
     Route: 065
  9. PSYLLIUM POWDER [Concomitant]
     Route: 065

REACTIONS (2)
  - FORMICATION [None]
  - HALLUCINATION, TACTILE [None]
